FAERS Safety Report 5420588-1 (Version None)
Quarter: 2007Q3

REPORT INFORMATION
  Report Type: 
  Country: None (occurrence: None)
  Receive Date: 20070816
  Receipt Date: 20070720
  Transmission Date: 20080115
  Serious: Yes (Other)
  Sender: FDA-Public Use
  Company Number: 6036243

PATIENT
  Age: 32 Year
  Sex: Male

DRUGS (10)
  1. FLUCONAZOLE [Suspect]
     Indication: OESOPHAGEAL CANDIDIASIS
     Dosage: 200 MG (200 MG, 1 IN 1 D)
  2. MAPROTILINE HCL [Suspect]
     Indication: DEPRESSIVE SYMPTOM
     Dosage: 50 MG (50 MG, 1 IN 1 D)
  3. RITONAVIR(RITONAVIR) [Suspect]
     Indication: HIV INFECTION
     Dosage: 800 MG (400 MG, 2 IN 1 D)
  4. SAQUINAVIR(SAQUINAVIR) [Concomitant]
  5. INDINIVIR SULFATE [Concomitant]
  6. STAVUDINE [Concomitant]
  7. AMPRENAVIR(AMPRENAVIR) [Concomitant]
  8. SULFAMETHOXAZOLE + TRIMETHOPRIM [Concomitant]
  9. VALPROIC ACID [Concomitant]
  10. CETIRIZINE HCL [Concomitant]

REACTIONS (10)
  - CONDUCTION DISORDER [None]
  - CONSTIPATION [None]
  - DRUG INTERACTION POTENTIATION [None]
  - DRUG LEVEL INCREASED [None]
  - DYSURIA [None]
  - ELECTROCARDIOGRAM ABNORMAL [None]
  - ELECTROCARDIOGRAM PR PROLONGATION [None]
  - ORTHOSTATIC HYPOTENSION [None]
  - POLYDIPSIA [None]
  - VERTIGO [None]
